FAERS Safety Report 6233600-7 (Version None)
Quarter: 2009Q2

REPORT INFORMATION
  Report Type: 
  Country: None (occurrence: None)
  Receive Date: 20090615
  Receipt Date: 20090608
  Transmission Date: 20091009
  Serious: Yes (Hospitalization)
  Sender: FDA-Public Use
  Company Number: 293155

PATIENT
  Age: 62 Year
  Sex: Male
  Weight: 87.09 kg

DRUGS (9)
  1. LEUCOVORIN CALCIUM [Suspect]
     Indication: COLORECTAL CANCER METASTATIC
     Dosage: 400 MG, Q2 WEEK, INTRAVENOUS DRIP
     Route: 041
     Dates: start: 20090429, end: 20090429
  2. AVASTIN [Suspect]
     Indication: COLORECTAL CANCER METASTATIC
     Dosage: 90 MG, Q2 WEEK, INTRAVENOUS (NOT OTHERWISE SPECIFIED)
     Route: 042
     Dates: start: 20090429, end: 20090429
  3. ELOXATIN [Suspect]
     Indication: COLORECTAL CANCER METASTATIC
     Dosage: 170 MG (Q2 WEEK), INTRAVENOUS (NOT OTHERWISE SPECIFIED)
     Route: 042
     Dates: start: 20090429, end: 20090429
  4. FLUOROURACIL [Suspect]
     Indication: COLORECTAL CANCER METASTATIC
     Dosage: 800 MG Q2 WEEK, INTRAVENOUS BOLUS
     Route: 040
     Dates: start: 20090429, end: 20090429
  5. FLUOROURACIL [Suspect]
     Dosage: (Q2 WEEK), INTRAVENOUS DRIP
     Route: 041
     Dates: start: 20090429, end: 20090429
  6. ONDANSETRON [Concomitant]
  7. DEXAMETHASONE [Concomitant]
  8. CALCIUM GLUCONATE [Concomitant]
  9. MAGNESIUM SULFATE INJ USP 50% (MAGNESIUM) [Concomitant]

REACTIONS (4)
  - BLOOD CREATININE INCREASED [None]
  - BLOOD LACTATE DEHYDROGENASE INCREASED [None]
  - THROMBOTIC THROMBOCYTOPENIC PURPURA [None]
  - WHITE BLOOD CELL COUNT INCREASED [None]
